FAERS Safety Report 24277415 (Version 1)
Quarter: 2024Q3

REPORT INFORMATION
  Report Type: Report from Study
  Country: US (occurrence: US)
  Receive Date: 20240903
  Receipt Date: 20240903
  Transmission Date: 20241016
  Serious: Yes (Other)
  Sender: BAYER
  Company Number: US-BAYER-2024A124647

PATIENT
  Age: 79 Year
  Sex: Female
  Weight: 37.642 kg

DRUGS (18)
  1. ADEMPAS [Suspect]
     Active Substance: RIOCIGUAT
     Indication: Pulmonary arterial hypertension
     Dosage: UNK
     Dates: start: 20240315
  2. ADEMPAS [Suspect]
     Active Substance: RIOCIGUAT
     Indication: Pulmonary arterial hypertension
     Dosage: 2.5 MG, TID
     Route: 048
  3. UPTRAVI [Concomitant]
     Active Substance: SELEXIPAG
  4. CRESTOR [Concomitant]
     Active Substance: ROSUVASTATIN CALCIUM
  5. MIDODRINE HYDROCHLORIDE [Concomitant]
     Active Substance: MIDODRINE HYDROCHLORIDE
  6. CARVEDILOL [Concomitant]
     Active Substance: CARVEDILOL
  7. HUMALOG [Concomitant]
     Active Substance: INSULIN LISPRO
  8. INFED [Concomitant]
     Active Substance: IRON DEXTRAN
  9. MYCOPHENOLIC ACID [Concomitant]
     Active Substance: MYCOPHENOLIC ACID
  10. FAMOTIDINE [Concomitant]
     Active Substance: FAMOTIDINE
  11. LANTUS SOLOSTAR [Concomitant]
     Active Substance: INSULIN GLARGINE
  12. OPSUMIT [Concomitant]
     Active Substance: MACITENTAN
  13. OXYGEN [Concomitant]
     Active Substance: OXYGEN
  14. BUMETANIDE [Concomitant]
     Active Substance: BUMETANIDE
  15. FOLIC ACID\IRON [Concomitant]
     Active Substance: FOLIC ACID\IRON
  16. NIFEDIPINE [Concomitant]
     Active Substance: NIFEDIPINE
  17. TACROLIMUS [Concomitant]
     Active Substance: TACROLIMUS
  18. METOLAZONE [Concomitant]
     Active Substance: METOLAZONE

REACTIONS (2)
  - Transfusion [None]
  - Gastrointestinal disorder [None]

NARRATIVE: CASE EVENT DATE: 20240101
